FAERS Safety Report 6293630-6 (Version None)
Quarter: 2009Q3

REPORT INFORMATION
  Report Type: 
  Country: None (occurrence: None)
  Receive Date: 20090730
  Receipt Date: 20090716
  Transmission Date: 20100115
  Serious: Yes (Other)
  Sender: FDA-Public Use
  Company Number: 0907-SPO-SPLN-0091

PATIENT
  Sex: Male

DRUGS (1)
  1. SUPPRELIN LA [Suspect]
     Indication: PRECOCIOUS PUBERTY
     Dosage: 1 IN 1 Y, SUB Q. IMPLANT
     Dates: start: 20080701, end: 20090101

REACTIONS (3)
  - CONVULSION [None]
  - EMOTIONAL DISORDER [None]
  - STARING [None]
